FAERS Safety Report 24279698 (Version 2)
Quarter: 2024Q3

REPORT INFORMATION
  Report Type: Spontaneous
  Country: US (occurrence: US)
  Receive Date: 20240904
  Receipt Date: 20240919
  Transmission Date: 20241017
  Serious: No
  Sender: NOVARTIS
  Company Number: US-002147023-NVSC2024US176487

PATIENT

DRUGS (1)
  1. KESIMPTA [Suspect]
     Active Substance: OFATUMUMAB
     Indication: Product used for unknown indication
     Dosage: UNK
     Route: 065

REACTIONS (7)
  - Laziness [Unknown]
  - Executive dysfunction [Unknown]
  - Brain fog [Unknown]
  - Attention deficit hyperactivity disorder [Unknown]
  - Distractibility [Unknown]
  - Mental fatigue [Unknown]
  - Paranoia [Unknown]
